FAERS Safety Report 5400082-4 (Version None)
Quarter: 2007Q3

REPORT INFORMATION
  Report Type: 
  Country: None (occurrence: None)
  Receive Date: 20070726
  Receipt Date: 20070726
  Transmission Date: 20080115
  Serious: Yes (Other)
  Sender: FDA-Public Use
  Company Number: None

PATIENT
  Age: 52 Year
  Sex: Male
  Weight: 95.2554 kg

DRUGS (2)
  1. PROPOFOL [Suspect]
     Indication: COLONOSCOPY
     Dosage: TOTAL DOSE WAS 190MG IV BOLUS
     Route: 040
     Dates: start: 20070723, end: 20070723
  2. PROPOFOL [Suspect]
     Indication: SEDATIVE THERAPY
     Dosage: TOTAL DOSE WAS 190MG IV BOLUS
     Route: 040
     Dates: start: 20070723, end: 20070723

REACTIONS (3)
  - CHILLS [None]
  - PAIN [None]
  - POSTOPERATIVE FEVER [None]
